FAERS Safety Report 21228230 (Version 1)
Quarter: 2022Q3

REPORT INFORMATION
  Report Type: Spontaneous
  Country: US (occurrence: US)
  Receive Date: 20220818
  Receipt Date: 20220818
  Transmission Date: 20221026
  Serious: No
  Sender: FDA-Public Use
  Company Number: US-AMNEAL PHARMACEUTICALS-2021-AMRX-04333

PATIENT
  Age: 56 Year
  Sex: Female

DRUGS (1)
  1. SPIRONOLACTONE [Suspect]
     Active Substance: SPIRONOLACTONE
     Indication: Acne
     Dosage: 100 MILLIGRAM, 1 /DAY
     Route: 048
     Dates: start: 20210203, end: 202104

REACTIONS (2)
  - Skin discolouration [Recovered/Resolved]
  - Off label use [Unknown]

NARRATIVE: CASE EVENT DATE: 20210201
